FAERS Safety Report 15593101 (Version 1)
Quarter: 2018Q4

REPORT INFORMATION
  Report Type: Spontaneous
  Country: US (occurrence: US)
  Receive Date: 20181106
  Receipt Date: 20181106
  Transmission Date: 20190205
  Serious: No
  Sender: FDA-Public Use
  Company Number: US-PFIZER INC-2018445845

PATIENT
  Age: 58 Year
  Sex: Female

DRUGS (2)
  1. TOVIAZ [Suspect]
     Active Substance: FESOTERODINE FUMARATE
     Dosage: 8 MG, UNK
  2. TOVIAZ [Suspect]
     Active Substance: FESOTERODINE FUMARATE
     Dosage: 4 MG, UNK

REACTIONS (6)
  - Condition aggravated [Unknown]
  - Glossodynia [Unknown]
  - Incontinence [Unknown]
  - Oropharyngeal pain [Unknown]
  - Prescribed overdose [Unknown]
  - Malaise [Unknown]
